FAERS Safety Report 7797166-2 (Version None)
Quarter: 2011Q4

REPORT INFORMATION
  Report Type: 
  Country: None (occurrence: None)
  Receive Date: 20111005
  Receipt Date: 20030805
  Transmission Date: 20120403
  Serious: Yes (Hospitalization, Other)
  Sender: FDA-Public Use
  Company Number: BR-RANBAXY-2003R5-48570

PATIENT

DRUGS (1)
  1. ISOTRETINOIN [Suspect]
     Indication: ACNE
     Dosage: 20 MG, 60MG/DAY
     Route: 048
     Dates: start: 20020623, end: 20020625

REACTIONS (8)
  - LIP DISORDER [None]
  - DYSARTHRIA [None]
  - STRABISMUS [None]
  - DIZZINESS [None]
  - BENIGN INTRACRANIAL HYPERTENSION [None]
  - PARALYSIS [None]
  - CEREBROVASCULAR ACCIDENT [None]
  - VIITH NERVE PARALYSIS [None]
